FAERS Safety Report 16885852 (Version 1)
Quarter: 2019Q4

REPORT INFORMATION
  Report Type: Spontaneous
  Country: CN (occurrence: CN)
  Receive Date: 20191004
  Receipt Date: 20191004
  Transmission Date: 20200122
  Serious: Yes (Other)
  Sender: FDA-Public Use
  Company Number: CN-ASTRAZENECA-2019SF40457

PATIENT
  Age: 49 Year
  Sex: Female
  Weight: 60 kg

DRUGS (1)
  1. LYNPARZA [Suspect]
     Active Substance: OLAPARIB
     Indication: NEOPLASM MALIGNANT
     Route: 048
     Dates: start: 20181001, end: 20190420

REACTIONS (3)
  - Metastases to bone [Unknown]
  - Hepatic function abnormal [Recovering/Resolving]
  - Metastases to central nervous system [Unknown]

NARRATIVE: CASE EVENT DATE: 20190420
